FAERS Safety Report 6755383-4 (Version None)
Quarter: 2010Q2

REPORT INFORMATION
  Report Type: 
  Country: None (occurrence: None)
  Receive Date: 20100604
  Receipt Date: 20100524
  Transmission Date: 20101027
  Serious: Yes (Other)
  Sender: FDA-Public Use
  Company Number: CN-PFIZER INC-2010064482

PATIENT
  Age: 21 Year
  Sex: Male

DRUGS (1)
  1. ZYVOX [Suspect]
     Indication: LUNG INFECTION
     Dosage: UNK
     Route: 048

REACTIONS (2)
  - CONVULSION [None]
  - MUSCLE TWITCHING [None]
